FAERS Safety Report 6466138-2 (Version None)
Quarter: 2009Q4

REPORT INFORMATION
  Report Type: 
  Country: None (occurrence: None)
  Receive Date: 20091201
  Receipt Date: 20091201
  Transmission Date: 20100525
  Serious: No
  Sender: FDA-Public Use
  Company Number: None

PATIENT
  Sex: Female
  Weight: 68.0396 kg

DRUGS (1)
  1. EPIDUO [Suspect]
     Indication: ACNE
     Dosage: PEA-SIZED AMOUNT - OR LESS- QID TOP
     Route: 061
     Dates: start: 20091001, end: 20091110

REACTIONS (2)
  - APPLICATION SITE HYPERSENSITIVITY [None]
  - DRUG HYPERSENSITIVITY [None]
